FAERS Safety Report 7760563-5 (Version None)
Quarter: 2011Q3

REPORT INFORMATION
  Report Type: 
  Country: None (occurrence: None)
  Receive Date: 20110919
  Receipt Date: 20110907
  Transmission Date: 20111222
  Serious: Yes (Other)
  Sender: FDA-Public Use
  Company Number: DE-AMGEN-DEUSP2011038717

PATIENT
  Age: 56 Year
  Sex: Female
  Weight: 76 kg

DRUGS (20)
  1. BISOPROLOL FUMARATE [Concomitant]
     Dosage: 2.5 MG, UNK
  2. FOSRENOL [Concomitant]
  3. CINACALCET HYDROCHLORIDE [Suspect]
     Indication: HYPERPARATHYROIDISM SECONDARY
     Dosage: 30 MG, QD
     Dates: start: 20110706
  4. CINACALCET HYDROCHLORIDE [Suspect]
     Dosage: 30 MG, QD
     Dates: start: 20090424, end: 20110420
  5. L-THYROX HEXAL [Concomitant]
  6. PANTOZOL                           /01263202/ [Concomitant]
     Dosage: 40 MG, UNK
  7. TETRAZEPAM [Concomitant]
  8. CINACALCET HYDROCHLORIDE [Suspect]
     Dosage: 60 MG, QD
  9. CINACALCET HYDROCHLORIDE [Suspect]
     Dosage: 90 MG, QD
     Dates: start: 20110420, end: 20110706
  10. CINACALCET HYDROCHLORIDE [Suspect]
     Dosage: 30 MG, Q12H
  11. PLANUM                             /00393701/ [Concomitant]
  12. RENVELA [Concomitant]
     Dosage: 2.4 G, UNK
  13. BICANORM [Concomitant]
  14. FERINJECT [Concomitant]
     Indication: DIALYSIS
     Dosage: 50 MG, UNK
  15. ZEMPLAR [Concomitant]
     Indication: DIALYSIS
     Dosage: 5 MUG/ML, 3 TIMES/WK
  16. TILIDIN HEXAL COMP [Concomitant]
  17. DREISAVIT N [Concomitant]
  18. RESTEX [Concomitant]
  19. DEKRISTOL [Concomitant]
  20. EPOETIN ZETA [Suspect]
     Indication: DIALYSIS
     Dosage: 6000 IU, 3 TIMES/WK

REACTIONS (7)
  - GASTROOESOPHAGEAL REFLUX DISEASE [None]
  - HIATUS HERNIA [None]
  - HYPOTENSION [None]
  - NAUSEA [None]
  - BLOOD PARATHYROID HORMONE INCREASED [None]
  - ABDOMINAL DISCOMFORT [None]
  - VOMITING [None]
